FAERS Safety Report 4580245-0 (Version None)
Quarter: 2005Q1

REPORT INFORMATION
  Report Type: 
  Country: None (occurrence: None)
  Receive Date: 20050214
  Receipt Date: 20041130
  Transmission Date: 20050727
  Serious: Yes (Other)
  Sender: FDA-Public Use
  Company Number: AU-GLAXOSMITHKLINE-B0359961A

PATIENT
  Age: 57 Year
  Sex: Female
  Weight: 52 kg

DRUGS (3)
  1. AROPAX [Suspect]
     Route: 065
  2. HRT [Concomitant]
  3. MULTIVITAMIN [Concomitant]

REACTIONS (3)
  - CONSTIPATION [None]
  - CONTUSION [None]
  - VISUAL ACUITY REDUCED [None]
